FAERS Safety Report 18973552 (Version 1)
Quarter: 2021Q1

REPORT INFORMATION
  Report Type: Spontaneous
  Country: US (occurrence: US)
  Receive Date: 20210305
  Receipt Date: 20210305
  Transmission Date: 20210420
  Serious: No
  Sender: FDA-Public Use
  Company Number: US-PFIZER INC-2021179001

PATIENT
  Age: 56 Year
  Sex: Female

DRUGS (2)
  1. GABAPENTIN. [Suspect]
     Active Substance: GABAPENTIN
     Dosage: 300 MG, 3X/DAY
  2. NABUMETONE. [Suspect]
     Active Substance: NABUMETONE
     Dosage: UNK

REACTIONS (2)
  - Muscle twitching [Unknown]
  - Peripheral swelling [Unknown]
